FAERS Safety Report 24760783 (Version 4)
Quarter: 2025Q4

REPORT INFORMATION
  Report Type: Other
  Country: US (occurrence: US)
  Receive Date: 20241220
  Receipt Date: 20251230
  Transmission Date: 20260118
  Serious: Yes (Other)
  Sender: TRAVERE THERAPEUTICS
  Company Number: US-TRAVERE-2024TVT01312

PATIENT
  Age: 62 Year
  Sex: Male

DRUGS (20)
  1. FILSPARI [Suspect]
     Active Substance: SPARSENTAN
     Indication: IgA nephropathy
     Route: 048
     Dates: start: 202411
  2. FILSPARI [Suspect]
     Active Substance: SPARSENTAN
     Route: 048
     Dates: start: 202412
  3. VALSARTAN [Suspect]
     Active Substance: VALSARTAN
     Indication: Product used for unknown indication
  4. TESTOSTERONE [Concomitant]
     Active Substance: TESTOSTERONE
     Indication: Product used for unknown indication
  5. FISH OIL [Concomitant]
     Active Substance: FISH OIL
  6. METOPROLOL SUCCINATE [Concomitant]
     Active Substance: METOPROLOL SUCCINATE
  7. MINERALS\VITAMINS [Concomitant]
     Active Substance: MINERALS\VITAMINS
  8. ROSUVASTATIN CALCIUM [Concomitant]
     Active Substance: ROSUVASTATIN CALCIUM
  9. DOXYCYCLINE [Concomitant]
     Active Substance: DOXYCYCLINE
  10. TYLENOL [Concomitant]
     Active Substance: ACETAMINOPHEN
  11. VITAMIN D3 [Concomitant]
     Active Substance: CHOLECALCIFEROL
  12. ALLOPURINOL [Concomitant]
     Active Substance: ALLOPURINOL
  13. FARXIGA [Concomitant]
     Active Substance: DAPAGLIFLOZIN PROPANEDIOL
  14. PREGABALIN [Concomitant]
     Active Substance: PREGABALIN
  15. LISINOPRIL [Concomitant]
     Active Substance: LISINOPRIL
  16. HERBALS\TURMERIC [Concomitant]
     Active Substance: HERBALS\TURMERIC
  17. VITAMIN B12 [Concomitant]
     Active Substance: CYANOCOBALAMIN
  18. CLARITIN-D NOS [Concomitant]
     Active Substance: LORATADINE\PSEUDOEPHEDRINE SULFATE
  19. TARPEYO [Concomitant]
     Active Substance: BUDESONIDE
  20. TOPROL XL [Concomitant]
     Active Substance: METOPROLOL SUCCINATE

REACTIONS (10)
  - Urine albumin/creatinine ratio increased [None]
  - Atrial fibrillation [Unknown]
  - Blood urea increased [Unknown]
  - Blood creatinine increased [None]
  - Blood urea nitrogen/creatinine ratio increased [Unknown]
  - Glomerular filtration rate decreased [Unknown]
  - Blood glucose increased [Unknown]
  - Contraindicated product administered [Unknown]
  - Hypoaesthesia [Unknown]
  - Paraesthesia [Unknown]

NARRATIVE: CASE EVENT DATE: 20241218
